FAERS Safety Report 25804444 (Version 1)
Quarter: 2025Q3

REPORT INFORMATION
  Report Type: Report from Study
  Country: AR (occurrence: AR)
  Receive Date: 20250915
  Receipt Date: 20250915
  Transmission Date: 20251020
  Serious: Yes (Other)
  Sender: ALEXION PHARMACEUTICALS
  Company Number: AR-AstraZeneca-CH-00948872A

PATIENT
  Sex: Male

DRUGS (1)
  1. DURVALUMAB [Suspect]
     Active Substance: DURVALUMAB
     Route: 065

REACTIONS (1)
  - Facial paralysis [Unknown]
